FAERS Safety Report 6107565-2 (Version None)
Quarter: 2009Q1

REPORT INFORMATION
  Report Type: 
  Country: None (occurrence: None)
  Receive Date: 20090309
  Receipt Date: 20090227
  Transmission Date: 20090719
  Serious: Yes (Other)
  Sender: FDA-Public Use
  Company Number: PHHY2008BE28233

PATIENT
  Sex: Male
  Weight: 64 kg

DRUGS (11)
  1. TEGRETOL [Suspect]
     Indication: SCHIZOAFFECTIVE DISORDER
     Dosage: 800 MG
     Route: 048
     Dates: start: 20080423, end: 20080716
  2. VALPROATE SODIUM [Concomitant]
     Indication: AFFECTIVE DISORDER
     Dosage: 1500 MG/DAY
     Route: 048
     Dates: start: 20080605, end: 20080731
  3. DEPAKENE [Concomitant]
     Dosage: 1500 MG
     Dates: start: 20080605, end: 20080731
  4. DEPAKENE [Concomitant]
     Dosage: 1000 MG
     Dates: start: 20080801
  5. PANTOZOL [Concomitant]
     Dosage: 40 MG
     Dates: start: 20080424, end: 20080925
  6. SEROQUEL [Concomitant]
     Indication: PSYCHOTIC DISORDER
     Dosage: 900 MG
     Dates: start: 20080628, end: 20080719
  7. LORAZEPAM [Concomitant]
     Indication: AGITATION
     Dosage: 2.5 MG
     Dates: start: 20080709, end: 20080806
  8. ECT (ELECTRO CONVULSIVE THERAPY) [Suspect]
  9. ZYPREXA [Concomitant]
     Indication: PSYCHOTIC DISORDER
     Dosage: 15 MG/DAY
     Route: 048
     Dates: start: 20080723, end: 20080727
  10. CLOZARIL [Concomitant]
     Indication: PSYCHOTIC DISORDER
     Dosage: 80 MG/DAY
     Route: 048
     Dates: start: 20080719
  11. DOMINAL FORTE [Concomitant]
     Indication: PSYCHOTIC DISORDER
     Dosage: 160 MG, UNK
     Route: 048
     Dates: start: 20080707

REACTIONS (6)
  - DERMATITIS ALLERGIC [None]
  - EOSINOPHILIA [None]
  - HAEMANGIOMA OF SKIN [None]
  - PRURITUS [None]
  - RASH MACULAR [None]
  - RASH PAPULAR [None]
